FAERS Safety Report 9662607 (Version 2)
Quarter: 2013Q4

REPORT INFORMATION
  Report Type: Spontaneous
  Country: US (occurrence: US)
  Receive Date: 20131031
  Receipt Date: 20131031
  Transmission Date: 20140711
  Serious: No
  Sender: FDA-Public Use
  Company Number: US-PURDUE-USA-2010-0062143

PATIENT
  Age: 57 Year
  Sex: Female
  Weight: 48.53 kg

DRUGS (4)
  1. OXYCONTIN (NDA 22-272) [Suspect]
     Indication: PAIN
     Dosage: 20 MG, TID
     Route: 048
     Dates: start: 2010
  2. OXYCONTIN (NDA 22-272) [Suspect]
     Dosage: 40 MG, TID
  3. OXYCONTIN (NDA 22-272) [Suspect]
     Dosage: 40 MG, Q12H
  4. ROXICODONE [Concomitant]
     Indication: BREAKTHROUGH PAIN
     Dosage: 15 MG, TID

REACTIONS (5)
  - Drug withdrawal syndrome [Unknown]
  - Pain [Unknown]
  - Drug tolerance [Unknown]
  - Inadequate analgesia [Unknown]
  - Insomnia [Unknown]
